FAERS Safety Report 7581862-6 (Version None)
Quarter: 2011Q2

REPORT INFORMATION
  Report Type: 
  Country: None (occurrence: None)
  Receive Date: 20110629
  Receipt Date: 20101208
  Transmission Date: 20111010
  Serious: Yes (Other)
  Sender: FDA-Public Use
  Company Number: PHHY2010DE92265

PATIENT
  Age: 60 Year
  Sex: Female

DRUGS (8)
  1. ALENDRONATE SODIUM [Suspect]
  2. CAPECITABINE [Concomitant]
  3. EPIRUBICIN [Concomitant]
  4. PAMIDRONATE DISODIUM [Suspect]
     Dosage: UNK UKN, UNK
     Route: 042
  5. VINORELBINE [Concomitant]
  6. ZOLEDRONIC ACID [Suspect]
     Dosage: UNK UKN, UNK
     Route: 042
  7. PACLITAXEL [Concomitant]
  8. MITOMYCIN [Concomitant]

REACTIONS (1)
  - OSTEONECROSIS OF JAW [None]
